FAERS Safety Report 5654169-1 (Version None)
Quarter: 2008Q1

REPORT INFORMATION
  Report Type: 
  Country: None (occurrence: None)
  Receive Date: 20080306
  Receipt Date: 20080304
  Transmission Date: 20080703
  Serious: Yes (Death)
  Sender: FDA-Public Use
  Company Number: JP-BOEHRINGER INGELHEIM GMBH, GERMANY-2007-BP-20907NB

PATIENT
  Sex: Female
  Weight: 43 kg

DRUGS (1)
  1. MICARDIS [Suspect]
     Indication: HYPERTENSION
     Route: 048
     Dates: start: 20060522, end: 20060825

REACTIONS (2)
  - ELECTROCARDIOGRAM T WAVE ABNORMAL [None]
  - SUDDEN DEATH [None]
